FAERS Safety Report 5920474-4 (Version None)
Quarter: 2008Q4

REPORT INFORMATION
  Report Type: 
  Country: None (occurrence: None)
  Receive Date: 20081015
  Receipt Date: 20081015
  Transmission Date: 20090506
  Serious: Yes (Hospitalization)
  Sender: FDA-Public Use
  Company Number: None

PATIENT
  Sex: Female
  Weight: 75.2 kg

DRUGS (7)
  1. BEVACIZUMAB [Suspect]
     Dosage: 10MG/KG EVERY 3 WEEKS IV HAS NOT STARTED
     Route: 042
  2. ZEGERID [Concomitant]
  3. DECADRON [Concomitant]
  4. DIFLUCAN [Concomitant]
  5. ATIVAN [Concomitant]
  6. DARVOCET [Concomitant]
  7. STOOL SOFTENER [Concomitant]

REACTIONS (1)
  - NO ADVERSE EVENT [None]
